FAERS Safety Report 6690121-5 (Version None)
Quarter: 2010Q2

REPORT INFORMATION
  Report Type: 
  Country: None (occurrence: None)
  Receive Date: 20100421
  Receipt Date: 20100415
  Transmission Date: 20101027
  Serious: Yes (Life-Threatening, Hospitalization)
  Sender: FDA-Public Use
  Company Number: PHHY2010US22923

PATIENT
  Sex: Male

DRUGS (2)
  1. EXFORGE [Suspect]
     Indication: HYPERTENSION
     Dosage: BID
     Route: 048
     Dates: start: 20100326, end: 20100404
  2. LOVASTATIN [Concomitant]

REACTIONS (2)
  - FEELING ABNORMAL [None]
  - HYPOTENSION [None]
